FAERS Safety Report 5361179-0 (Version None)
Quarter: 2007Q2

REPORT INFORMATION
  Report Type: 
  Country: None (occurrence: None)
  Receive Date: 20070530
  Receipt Date: 20070104
  Transmission Date: 20071010
  Serious: No
  Sender: FDA-Public Use
  Company Number: 2006PV027074

PATIENT
  Age: 47 Year
  Sex: Female
  Weight: 62.5964 kg

DRUGS (7)
  1. BYETTA [Suspect]
     Indication: DIABETES MELLITUS NON-INSULIN-DEPENDENT
     Dosage: 5 MCG; BID; SC
     Route: 058
     Dates: start: 20061214, end: 20061201
  2. GLUCOPHAGE XR [Concomitant]
  3. HUMULIN 70/30 [Concomitant]
  4. XANAX [Concomitant]
  5. POTASSIUM CHLORIDE [Concomitant]
  6. OXYCONTIN [Concomitant]
  7. INSULIN [Concomitant]

REACTIONS (4)
  - BLOOD GLUCOSE DECREASED [None]
  - NAUSEA [None]
  - PALPITATIONS [None]
  - TREMOR [None]
